FAERS Safety Report 20649548 (Version 1)
Quarter: 2022Q1

REPORT INFORMATION
  Report Type: Spontaneous
  Country: US (occurrence: US)
  Receive Date: 20220329
  Receipt Date: 20220329
  Transmission Date: 20220424
  Serious: Yes (Hospitalization, Other)
  Sender: FDA-Public Use
  Company Number: US-PFIZER INC-202200432471

PATIENT
  Age: 37 Year
  Sex: Female
  Weight: 79.38 kg

DRUGS (1)
  1. CYTOMEL [Suspect]
     Active Substance: LIOTHYRONINE SODIUM
     Indication: Hypothyroidism
     Dosage: UNK, 2X/DAY (2 TABLETS TWICE A DAY)
     Dates: start: 2015

REACTIONS (5)
  - Mental disorder [Unknown]
  - Myocardial infarction [Unknown]
  - Hyperinsulinaemia [Not Recovered/Not Resolved]
  - Cardiac failure [Unknown]
  - Arrhythmia [Unknown]

NARRATIVE: CASE EVENT DATE: 20150101
